FAERS Safety Report 13463825 (Version 1)
Quarter: 2017Q2

REPORT INFORMATION
  Report Type: Spontaneous
  Country: US (occurrence: US)
  Receive Date: 20170420
  Receipt Date: 20170420
  Transmission Date: 20170830
  Serious: Yes (Other)
  Sender: FDA-Public Use
  Company Number: US-ROCHE-690628

PATIENT
  Age: 18 Year
  Sex: Male
  Weight: 104.3 kg

DRUGS (1)
  1. ACCUTANE [Suspect]
     Active Substance: ISOTRETINOIN
     Indication: ACNE CYSTIC
     Route: 065
     Dates: start: 200201, end: 200206

REACTIONS (7)
  - Colitis ulcerative [Unknown]
  - Inflammatory bowel disease [Unknown]
  - Blood triglycerides increased [Recovered/Resolved]
  - Cellulitis [Unknown]
  - Myalgia [Unknown]
  - Dry skin [Unknown]
  - Colitis [Unknown]

NARRATIVE: CASE EVENT DATE: 2002
